FAERS Safety Report 18038169 (Version 1)
Quarter: 2020Q3

REPORT INFORMATION
  Report Type: Spontaneous
  Country: ES (occurrence: ES)
  Receive Date: 20200718
  Receipt Date: 20200718
  Transmission Date: 20201103
  Serious: Yes (Hospitalization, Other)
  Sender: FDA-Public Use
  Company Number: ES-AUROBINDO-AUR-APL-2016-01137

PATIENT
  Age: 71 Year
  Sex: Female

DRUGS (2)
  1. ALENDRONIC ACID 70 [Suspect]
     Active Substance: ALENDRONIC ACID
     Indication: OSTEOPOROSIS POSTMENOPAUSAL
     Dosage: 70 MILLIGRAM EVERY WEEK
     Route: 048
     Dates: start: 20090330, end: 20140407
  2. CALCIFEROL [COLECALCIFEROL] [Suspect]
     Active Substance: CHOLECALCIFEROL
     Indication: PRODUCT USED FOR UNKNOWN INDICATION
     Dosage: UNK 5600 ENZYME UNIT
     Route: 065

REACTIONS (2)
  - Atypical femur fracture [Recovered/Resolved]
  - Pain [Recovered/Resolved]

NARRATIVE: CASE EVENT DATE: 20140407
